FAERS Safety Report 5225672-3 (Version None)
Quarter: 2007Q1

REPORT INFORMATION
  Report Type: 
  Country: None (occurrence: None)
  Receive Date: 20061201
  Receipt Date: 20061025
  Transmission Date: 20070707
  Serious: No
  Sender: FDA-Public Use
  Company Number: US200610004697

PATIENT
  Sex: Female

DRUGS (2)
  1. CYMBALTA [Suspect]
     Indication: PAIN MANAGEMENT
     Dosage: 30 MG
     Dates: start: 20060701, end: 20061022
  2. DIOVAN [Concomitant]

REACTIONS (7)
  - ASTHENIA [None]
  - DIZZINESS [None]
  - MALAISE [None]
  - NAUSEA [None]
  - PAIN [None]
  - PRURITUS [None]
  - SOMNOLENCE [None]
